FAERS Safety Report 9675877 (Version 1)
Quarter: 2013Q4

REPORT INFORMATION
  Report Type: Spontaneous
  Country: JP (occurrence: JP)
  Receive Date: 20131107
  Receipt Date: 20131107
  Transmission Date: 20140711
  Serious: Yes (Other)
  Sender: FDA-Public Use
  Company Number: JP-GLAXOSMITHKLINE-B0939896A

PATIENT
  Sex: 0

DRUGS (1)
  1. VALTREX [Suspect]
     Indication: ORAL HERPES
     Route: 048

REACTIONS (1)
  - VIIth nerve paralysis [Unknown]
